FAERS Safety Report 5470602-2 (Version None)
Quarter: 2007Q3

REPORT INFORMATION
  Report Type: 
  Country: None (occurrence: None)
  Receive Date: 20070927
  Receipt Date: 20070927
  Transmission Date: 20080115
  Serious: Yes (Hospitalization)
  Sender: FDA-Public Use
  Company Number: None

PATIENT
  Age: 73 Year
  Sex: Female

DRUGS (5)
  1. HEPARIN [Suspect]
     Indication: ATRIAL FLUTTER
     Dosage: 18 UNITS/KG PER HOUR IV DRIP
     Route: 041
     Dates: start: 20070905, end: 20070907
  2. CARDIZEM CD [Concomitant]
  3. COUMADIN [Concomitant]
  4. LOVENOX [Concomitant]
  5. SYNTHROID [Concomitant]

REACTIONS (2)
  - ACTIVATED PARTIAL THROMBOPLASTIN TIME PROLONGED [None]
  - DEVICE MALFUNCTION [None]
